FAERS Safety Report 13194815 (Version 10)
Quarter: 2017Q3

REPORT INFORMATION
  Report Type: Spontaneous
  Country: KR (occurrence: KR)
  Receive Date: 20170207
  Receipt Date: 20170912
  Transmission Date: 20171127
  Serious: Yes (Hospitalization, Other)
  Sender: FDA-Public Use
  Company Number: KR-009507513-1702KOR001740

PATIENT
  Age: 58 Year
  Sex: Female
  Weight: 55.9 kg

DRUGS (59)
  1. TAXOTERE [Concomitant]
     Active Substance: DOCETAXEL
     Indication: GASTRIC CANCER
     Dosage: 113 MG, ONCE, CYCLE 1, STRENGHT: 80MG/4ML
     Route: 042
     Dates: start: 20160812, end: 20160812
  2. CISPLAN [Concomitant]
     Active Substance: CISPLATIN
     Indication: GASTRIC CANCER
     Dosage: 91 MG, ONCE, CYCLE 1, STRENGTH: 50MG/100ML
     Route: 042
     Dates: start: 20160812, end: 20160812
  3. DEXAMETHASONE SODIUM PHOSPHATE. [Concomitant]
     Active Substance: DEXAMETHASONE SODIUM PHOSPHATE
     Dosage: 4 MG, BID, STRENGTH: 5MG/ML
     Route: 042
     Dates: start: 20161015, end: 20161015
  4. DEXAMETHASONE SODIUM PHOSPHATE. [Concomitant]
     Active Substance: DEXAMETHASONE SODIUM PHOSPHATE
     Dosage: 5 MG, QD, STRENTH: 5MG/ML
     Route: 042
     Dates: start: 20160929, end: 20161014
  5. MACPERAN [Concomitant]
     Active Substance: METOCLOPRAMIDE HYDROCHLORIDE
     Dosage: 10 MG, TID
     Route: 042
     Dates: start: 20161114, end: 20161128
  6. CURAN [Concomitant]
     Active Substance: RANITIDINE HYDROCHLORIDE
     Dosage: 50 MG, ONCE, STRENGTH: 50MG/2ML
     Route: 042
     Dates: start: 20161014, end: 20161014
  7. LASIX [Concomitant]
     Active Substance: FUROSEMIDE
     Dosage: 20 MG, ONCE, STRENGTH: 20MG/2ML
     Route: 042
     Dates: start: 20160901, end: 20160901
  8. NEXIUM I.V. [Concomitant]
     Active Substance: ESOMEPRAZOLE SODIUM
     Indication: PROPHYLAXIS
     Dosage: 40 MG, QD
     Route: 042
     Dates: start: 20160812, end: 20160912
  9. TAXOTERE [Concomitant]
     Active Substance: DOCETAXEL
     Dosage: 111 MG, ONCE, CYCLE 3, STRENGHT: 80MG/4ML
     Route: 042
     Dates: start: 20160922, end: 20160922
  10. TAXOTERE [Concomitant]
     Active Substance: DOCETAXEL
     Dosage: 109 MG, ONCE, CYCLE 5, STRENGHT: 80MG/4ML
     Route: 042
     Dates: start: 20161111, end: 20161111
  11. CISPLAN [Concomitant]
     Active Substance: CISPLATIN
     Dosage: 90 MG, ONCE, CYCLE 2, STRENGTH: 50MG/100ML
     Route: 042
     Dates: start: 20160901, end: 20160901
  12. DEXAMETHASONE SODIUM PHOSPHATE. [Concomitant]
     Active Substance: DEXAMETHASONE SODIUM PHOSPHATE
     Indication: PROPHYLAXIS OF NAUSEA AND VOMITING
     Dosage: 12 MG, ONCE, STRENGTH: 5MG/ML
     Route: 042
     Dates: start: 20160812, end: 20160812
  13. DEXAMETHASONE SODIUM PHOSPHATE. [Concomitant]
     Active Substance: DEXAMETHASONE SODIUM PHOSPHATE
     Dosage: 4 MG, BID, STRENGTH: 5MG/ML
     Route: 042
     Dates: start: 20160902, end: 20160902
  14. LASIX [Concomitant]
     Active Substance: FUROSEMIDE
     Dosage: 20 MG, ONCE, STRENGTH: 20MG/2ML
     Route: 042
     Dates: start: 20161111, end: 20161111
  15. OMNICEF [Concomitant]
     Active Substance: CEFDINIR
     Indication: URINARY TRACT INFECTION
     Dosage: 200 MG, BID
     Route: 048
     Dates: start: 20160812, end: 20160818
  16. EMEND (FOSAPREPITANT DIMEGLUMINE) [Suspect]
     Active Substance: FOSAPREPITANT DIMEGLUMINE
     Dosage: 150 MG, ONCE
     Route: 042
     Dates: start: 20161014, end: 20161014
  17. DEXAMETHASONE SODIUM PHOSPHATE. [Concomitant]
     Active Substance: DEXAMETHASONE SODIUM PHOSPHATE
     Dosage: 17 MG, ONCE, STRENGTH: 5MG/ML
     Route: 042
     Dates: start: 20160922, end: 20160922
  18. DEXAMETHASONE SODIUM PHOSPHATE. [Concomitant]
     Active Substance: DEXAMETHASONE SODIUM PHOSPHATE
     Dosage: 10 MG, ONCE, STRENGTH: 5MG/ML
     Route: 042
     Dates: start: 20161207, end: 20161207
  19. DEXAMETHASONE SODIUM PHOSPHATE. [Concomitant]
     Active Substance: DEXAMETHASONE SODIUM PHOSPHATE
     Dosage: 5 MG, QD, STRENTH: 5MG/ML
     Route: 042
     Dates: start: 20160820, end: 20160824
  20. DEXAMETHASONE. [Concomitant]
     Active Substance: DEXAMETHASONE
     Indication: PROPHYLAXIS OF NAUSEA AND VOMITING
     Dosage: 4 MG, BID
     Route: 048
     Dates: start: 20160813, end: 20160815
  21. CURAN [Concomitant]
     Active Substance: RANITIDINE HYDROCHLORIDE
     Indication: PROPHYLAXIS
     Dosage: 50 MG, ONCE, STRENGTH: 50MG/2ML
     Route: 042
     Dates: start: 20160812, end: 20160812
  22. CURAN [Concomitant]
     Active Substance: RANITIDINE HYDROCHLORIDE
     Dosage: 50 MG, ONCE, STRENGTH: 50MG/2ML
     Route: 042
     Dates: start: 20160901, end: 20160901
  23. EMEND (FOSAPREPITANT DIMEGLUMINE) [Suspect]
     Active Substance: FOSAPREPITANT DIMEGLUMINE
     Indication: PROPHYLAXIS OF NAUSEA AND VOMITING
     Dosage: 150 MG, ONCE
     Route: 042
     Dates: start: 20160812, end: 20160812
  24. EMEND (FOSAPREPITANT DIMEGLUMINE) [Suspect]
     Active Substance: FOSAPREPITANT DIMEGLUMINE
     Dosage: 150 MG, ONCE
     Route: 042
     Dates: start: 20160922, end: 20160922
  25. CISPLAN [Concomitant]
     Active Substance: CISPLATIN
     Dosage: 87 MG, ONCE, CYCLE 5, STRENGTH: 50MG/100ML
     Route: 042
     Dates: start: 20161111, end: 20161111
  26. CISPLAN [Concomitant]
     Active Substance: CISPLATIN
     Dosage: 87 MG, ONCE, CYCLE 6, STRENGTH: 50MG/100ML
     Route: 042
     Dates: start: 20161206, end: 20161206
  27. DEXAMETHASONE SODIUM PHOSPHATE. [Concomitant]
     Active Substance: DEXAMETHASONE SODIUM PHOSPHATE
     Dosage: 12 MG, ONCE, STRENGTH: 5MG/ML
     Route: 042
     Dates: start: 20161206, end: 20161206
  28. CURAN [Concomitant]
     Active Substance: RANITIDINE HYDROCHLORIDE
     Dosage: 50 MG, QD, STRENGTH: 50MG/2ML
     Route: 042
     Dates: start: 20161206, end: 20161207
  29. NEXIUM I.V. [Concomitant]
     Active Substance: ESOMEPRAZOLE SODIUM
     Dosage: 40 MG, QD
     Route: 042
     Dates: start: 20160921, end: 20161004
  30. EMEND (FOSAPREPITANT DIMEGLUMINE) [Suspect]
     Active Substance: FOSAPREPITANT DIMEGLUMINE
     Dosage: 150 MG, ONCE
     Route: 042
     Dates: start: 20160901, end: 20160901
  31. DEXAMETHASONE SODIUM PHOSPHATE. [Concomitant]
     Active Substance: DEXAMETHASONE SODIUM PHOSPHATE
     Dosage: 4 MG, BID, STRENGTH: 5MG/ML
     Route: 042
     Dates: start: 20160923, end: 20160925
  32. DEXAMETHASONE SODIUM PHOSPHATE. [Concomitant]
     Active Substance: DEXAMETHASONE SODIUM PHOSPHATE
     Dosage: 10 MG, ONCE, STRENGTH: 5MG/ML
     Route: 042
     Dates: start: 20161112, end: 20161112
  33. ALOXI [Concomitant]
     Active Substance: PALONOSETRON HYDROCHLORIDE
     Dosage: 5 ML, ONCE
     Route: 042
     Dates: start: 20160922, end: 20160922
  34. CURAN [Concomitant]
     Active Substance: RANITIDINE HYDROCHLORIDE
     Dosage: 50 MG, ONCE, STRENGTH: 50MG/2ML
     Route: 042
     Dates: start: 20160922, end: 20160922
  35. TAXOTERE [Concomitant]
     Active Substance: DOCETAXEL
     Dosage: 112 MG, ONCE, CYCLE 4, STRENGHT: 80MG/4ML
     Route: 042
     Dates: start: 20161014, end: 20161014
  36. TAXOTERE [Concomitant]
     Active Substance: DOCETAXEL
     Dosage: 109 MG, ONCE, CYCLE 6, STRENGHT: 80MG/4ML
     Route: 042
     Dates: start: 20161206, end: 20161206
  37. CISPLAN [Concomitant]
     Active Substance: CISPLATIN
     Dosage: 90 MG, ONCE, CYCLE 4, STRENGTH: 50MG/100ML
     Route: 042
     Dates: start: 20161014, end: 20161014
  38. DEXAMETHASONE SODIUM PHOSPHATE. [Concomitant]
     Active Substance: DEXAMETHASONE SODIUM PHOSPHATE
     Indication: NAUSEA
     Dosage: 12 MG, ONCE, STRENGTH: 5MG/ML
     Route: 042
     Dates: start: 20160901, end: 20160901
  39. DEXAMETHASONE SODIUM PHOSPHATE. [Concomitant]
     Active Substance: DEXAMETHASONE SODIUM PHOSPHATE
     Dosage: 4 MG, BID, STRENGTH: 5MG/ML
     Route: 042
     Dates: start: 20161017, end: 20161017
  40. DEXAMETHASONE SODIUM PHOSPHATE. [Concomitant]
     Active Substance: DEXAMETHASONE SODIUM PHOSPHATE
     Dosage: 12 MG, ONCE, STRENGTH: 5MG/ML
     Route: 042
     Dates: start: 20161111, end: 20161111
  41. DICHLOZID [Concomitant]
     Indication: HYPERTENSION
     Dosage: 12.5 MG, BID
     Route: 048
     Dates: end: 20160921
  42. MACPERAN [Concomitant]
     Active Substance: METOCLOPRAMIDE HYDROCHLORIDE
     Indication: ABDOMINAL DISTENSION
     Dosage: 10 MG, TID
     Route: 042
     Dates: start: 20160811, end: 20160912
  43. MACPERAN [Concomitant]
     Active Substance: METOCLOPRAMIDE HYDROCHLORIDE
     Indication: NAUSEA
     Dosage: 10 MG, TID
     Route: 042
     Dates: start: 20161110, end: 20161112
  44. CURAN [Concomitant]
     Active Substance: RANITIDINE HYDROCHLORIDE
     Dosage: 50 MG, ONCE, STRENGTH: 50MG/2ML
     Route: 042
     Dates: start: 20161111, end: 20161111
  45. LASIX [Concomitant]
     Active Substance: FUROSEMIDE
     Dosage: 20 MG, ONCE, STRENGTH: 20MG/2ML
     Route: 042
     Dates: start: 20161014, end: 20161014
  46. EMEND (FOSAPREPITANT DIMEGLUMINE) [Suspect]
     Active Substance: FOSAPREPITANT DIMEGLUMINE
     Dosage: 150 MG, ONCE
     Route: 042
     Dates: start: 20161206, end: 20161206
  47. DEXAMETHASONE SODIUM PHOSPHATE. [Concomitant]
     Active Substance: DEXAMETHASONE SODIUM PHOSPHATE
     Dosage: 12 MG, ONCE, STRENGTH: 5MG/ML
     Route: 042
     Dates: start: 20161014, end: 20161014
  48. DEXAMETHASONE. [Concomitant]
     Active Substance: DEXAMETHASONE
     Dosage: 4 MG, QD
     Route: 048
     Dates: start: 20161112, end: 20161114
  49. DEXAMETHASONE. [Concomitant]
     Active Substance: DEXAMETHASONE
     Dosage: 4 MG, BID
     Route: 048
     Dates: start: 20161210, end: 20161211
  50. ALOXI [Concomitant]
     Active Substance: PALONOSETRON HYDROCHLORIDE
     Indication: PROPHYLAXIS OF NAUSEA AND VOMITING
     Dosage: 5 ML, ONCE
     Route: 042
     Dates: start: 20160812, end: 20160812
  51. MORPHINE HYDROCHLORIDE [Concomitant]
     Active Substance: MORPHINE HYDROCHLORIDE
     Indication: CANCER PAIN
     Dosage: 48 MG, QD; CONTINUOUS MORPHINE 2MG/HR
     Route: 042
     Dates: start: 20160811, end: 20160825
  52. EMEND (FOSAPREPITANT DIMEGLUMINE) [Suspect]
     Active Substance: FOSAPREPITANT DIMEGLUMINE
     Dosage: 150 MG, ONCE
     Route: 042
     Dates: start: 20161111, end: 20161111
  53. TAXOTERE [Concomitant]
     Active Substance: DOCETAXEL
     Dosage: 113 MG, ONCE, CYCLE 2, STRENGHT: 80MG/4ML
     Route: 042
     Dates: start: 20160901, end: 20160901
  54. CISPLAN [Concomitant]
     Active Substance: CISPLATIN
     Dosage: 88 MG, ONCE, CYCLE 3, STRENGTH: 50MG/100ML
     Route: 042
     Dates: start: 20160922, end: 20160922
  55. DEXAMETHASONE. [Concomitant]
     Active Substance: DEXAMETHASONE
     Dosage: 4 MG, BID
     Route: 048
     Dates: start: 20161016, end: 20161016
  56. TENORMIN [Concomitant]
     Active Substance: ATENOLOL
     Indication: HYPERTENSION
     Dosage: 25 MG, BID
     Route: 048
     Dates: end: 20160921
  57. MACPERAN [Concomitant]
     Active Substance: METOCLOPRAMIDE HYDROCHLORIDE
     Indication: PROPHYLAXIS OF NAUSEA AND VOMITING
     Dosage: 10 MG, TID
     Route: 042
     Dates: start: 20160921, end: 20160930
  58. LASIX [Concomitant]
     Active Substance: FUROSEMIDE
     Indication: PROPHYLAXIS
     Dosage: 20 MG, ONCE, STRENGTH: 20MG/2ML
     Route: 042
     Dates: start: 20160812, end: 20160812
  59. NEXIUM I.V. [Concomitant]
     Active Substance: ESOMEPRAZOLE SODIUM
     Dosage: 40 MG, QD
     Route: 042
     Dates: start: 20161114, end: 20161128

REACTIONS (16)
  - Pyrexia [Recovered/Resolved]
  - Febrile neutropenia [Recovered/Resolved]
  - Neutropenia [Recovered/Resolved]
  - Paraesthesia [Not Recovered/Not Resolved]
  - Supraventricular tachycardia [Recovered/Resolved]
  - Cholecystitis acute [Recovered/Resolved]
  - Neutropenia [Recovered/Resolved]
  - Neutropenia [Recovered/Resolved]
  - Liver function test increased [Recovered/Resolved]
  - Neutropenia [Recovered/Resolved]
  - Nausea [Recovered/Resolved]
  - Nausea [Recovered/Resolved]
  - Pulmonary infarction [Recovered/Resolved]
  - Neutropenia [Recovered/Resolved]
  - Ischaemia [Recovered/Resolved]
  - Nausea [Recovered/Resolved]

NARRATIVE: CASE EVENT DATE: 20160818
